FAERS Safety Report 10659481 (Version 1)
Quarter: 2014Q4

REPORT INFORMATION
  Report Type: Spontaneous
  Country: US (occurrence: None)
  Receive Date: 20141205
  Receipt Date: 20141205
  Transmission Date: 20150529
  Serious: Yes (Hospitalization)
  Sender: FDA-Public Use
  Company Number: 163-POMAL-14092501

PATIENT
  Age: 72 Year
  Sex: Female
  Weight: 71.22 kg

DRUGS (13)
  1. POMALYST [Suspect]
     Active Substance: POMALIDOMIDE
     Indication: PLASMA CELL MYELOMA
     Route: 048
     Dates: start: 20140220, end: 2014
  2. NEUPOGEN (FILGRASTIM) [Concomitant]
     Active Substance: FILGRASTIM
  3. CALCIUM (CALCIUM) [Concomitant]
     Active Substance: CALCIUM
  4. DEXAMETHASONE (DEXAMETHASONE) [Concomitant]
     Active Substance: DEXAMETHASONE
  5. IVIG (IMMUNOGLOBULIN G HUMAN) [Concomitant]
  6. BACTRIM DS (SULFAMETHOXAZOLE, TRIMETHOPRIM) [Concomitant]
  7. OMEPRAZOLE (OMEPRAZOLE) [Concomitant]
     Active Substance: OMEPRAZOLE
  8. KCL (POTASSIUM CHLORIDE) [Concomitant]
  9. BIOTIN (BIOTIN) [Concomitant]
  10. VESICARE [Concomitant]
     Active Substance: SOLIFENACIN SUCCINATE
  11. VANCO (VANCOMYCIN HYDROCHLORIDE) [Concomitant]
  12. NORCO (PARACETAMOL, HYDROCODONE BITARTRATE) [Concomitant]
  13. ACYCLOVIR  (ACICLOVIR) [Concomitant]

REACTIONS (1)
  - Infection [None]

NARRATIVE: CASE EVENT DATE: 20140911
